FAERS Safety Report 21475496 (Version 1)
Quarter: 2022Q4

REPORT INFORMATION
  Report Type: Spontaneous
  Country: EG (occurrence: EG)
  Receive Date: 20221019
  Receipt Date: 20221019
  Transmission Date: 20230112
  Serious: Yes (Other)
  Sender: FDA-Public Use
  Company Number: EG-STRIDES ARCOLAB LIMITED-2022SP013643

PATIENT
  Age: 43 Year
  Sex: Male

DRUGS (9)
  1. DOXORUBICIN [Suspect]
     Active Substance: DOXORUBICIN
     Indication: Diffuse large B-cell lymphoma
     Dosage: UNK, CYCLICAL, RECEIVED 8 CYCLES OF CHOP PROTOCOL
     Route: 065
  2. PREDNISOLONE [Suspect]
     Active Substance: PREDNISOLONE
     Indication: Diffuse large B-cell lymphoma
     Dosage: UNK, CYCLICAL, RECEIVED 8 CYCLES OF CHOP PROTOCOL
     Route: 065
  3. CISPLATIN [Suspect]
     Active Substance: CISPLATIN
     Indication: Diffuse large B-cell lymphoma
     Dosage: UNK, CYCLICAL, RECEIVED 4 CYCLES OF DHAP PROTOCOL.
     Route: 065
  4. DEXAMETHASONE [Suspect]
     Active Substance: DEXAMETHASONE
     Indication: Diffuse large B-cell lymphoma
     Dosage: UNK, CYCLICAL, RECEIVED 4 CYCLES OF DHAP PROTOCOL.
     Route: 065
  5. CYCLOPHOSPHAMIDE [Suspect]
     Active Substance: CYCLOPHOSPHAMIDE
     Indication: Diffuse large B-cell lymphoma
     Dosage: UNK, CYCLICAL, RECEIVED 8 CYCLES OF CHOP PROTOCOL
     Route: 065
  6. VINCRISTINE [Suspect]
     Active Substance: VINCRISTINE
     Indication: Diffuse large B-cell lymphoma
     Dosage: UNK, CYCLICAL, RECEIVED 8 CYCLES OF CHOP PROTOCOL
     Route: 065
  7. FLUOROURACIL [Suspect]
     Active Substance: FLUOROURACIL
     Indication: Diffuse large B-cell lymphoma
     Dosage: UNK, CYCLICAL, RECEIVED 6 CYCLES OF ADJUVANT DE GRAMONT REGIMEN.
     Route: 065
  8. LEUCOVORIN [Suspect]
     Active Substance: LEUCOVORIN
     Indication: Diffuse large B-cell lymphoma
     Dosage: UNK
     Route: 065
  9. CYTARABINE [Suspect]
     Active Substance: CYTARABINE
     Indication: Diffuse large B-cell lymphoma
     Dosage: UNK, CYCLICAL, RECEIVED 4 CYCLES OF DHAP PROTOCOL.
     Route: 065

REACTIONS (3)
  - Second primary malignancy [Unknown]
  - Drug ineffective [Unknown]
  - Off label use [Unknown]
